FAERS Safety Report 5146033-1 (Version None)
Quarter: 2006Q4

REPORT INFORMATION
  Report Type: 
  Country: None (occurrence: None)
  Receive Date: 20061108
  Receipt Date: 20060828
  Transmission Date: 20070319
  Serious: Yes (Other)
  Sender: FDA-Public Use
  Company Number: US-GLAXOSMITHKLINE-A0618262A

PATIENT
  Age: 22 Year
  Sex: Female

DRUGS (3)
  1. WELLBUTRIN XL [Suspect]
     Indication: DRUG USE FOR UNKNOWN INDICATION
     Dosage: 300MG PER DAY
     Route: 048
     Dates: start: 20041210, end: 20060301
  2. KLONOPIN [Concomitant]
     Dosage: 2MG AT NIGHT
     Dates: start: 20041010
  3. TRAZODONE HCL [Concomitant]
     Route: 048
     Dates: start: 20051215, end: 20060220

REACTIONS (5)
  - AURA [None]
  - CONVULSION [None]
  - FEELING ABNORMAL [None]
  - GRAND MAL CONVULSION [None]
  - POSTICTAL STATE [None]
